FAERS Safety Report 23571825 (Version 1)
Quarter: 2024Q1

REPORT INFORMATION
  Report Type: Spontaneous
  Country: US (occurrence: None)
  Receive Date: 20240227
  Receipt Date: 20240227
  Transmission Date: 20240409
  Serious: Yes (Death, Life-Threatening, Hospitalization, Disabling, Other)
  Sender: FDA-Public Use
  Company Number: None

PATIENT
  Age: 85 Year
  Sex: Male
  Weight: 57 kg

DRUGS (1)
  1. KEYTRUDA [Suspect]
     Active Substance: PEMBROLIZUMAB
     Indication: Bladder cancer
     Dates: start: 20240106

REACTIONS (10)
  - Decreased appetite [None]
  - Cough [None]
  - Pruritus [None]
  - Rash [None]
  - Urine output decreased [None]
  - Dyspnoea [None]
  - Blood pressure fluctuation [None]
  - Heart rate irregular [None]
  - Oxygen saturation decreased [None]
  - Renal failure [None]

NARRATIVE: CASE EVENT DATE: 20240108
